FAERS Safety Report 20232344 (Version 1)
Quarter: 2021Q4

REPORT INFORMATION
  Report Type: Spontaneous
  Country: DE (occurrence: DE)
  Receive Date: 20211227
  Receipt Date: 20211227
  Transmission Date: 20220303
  Serious: Yes (Life-Threatening, Other)
  Sender: FDA-Public Use
  Company Number: None

PATIENT
  Sex: Male

DRUGS (7)
  1. HYDROCHLOROTHIAZIDE [Concomitant]
     Active Substance: HYDROCHLOROTHIAZIDE
     Indication: Product used for unknown indication
     Dosage: UNKNOWN
  2. ASPIRIN [Concomitant]
     Active Substance: ASPIRIN
     Indication: Anticoagulant therapy
     Dosage: UNKNOWN
  3. FENOFIBRATE [Interacting]
     Active Substance: FENOFIBRATE
     Indication: Product used for unknown indication
     Dosage: UNKNOWN
     Route: 065
  4. vigantol 1000 IE [Concomitant]
     Indication: Product used for unknown indication
     Dosage: UNKNOWN
  5. ROSUVASTATIN CALCIUM [Interacting]
     Active Substance: ROSUVASTATIN CALCIUM
     Indication: Blood cholesterol increased
     Dosage: ABENDS
     Dates: start: 20200706, end: 20200728
  6. BISOPROLOL [Concomitant]
     Active Substance: BISOPROLOL
     Indication: Product used for unknown indication
  7. Natrium chloratum [Concomitant]
     Indication: Product used for unknown indication
     Dosage: UNKNOWN

REACTIONS (37)
  - Arrhythmia [Recovered/Resolved]
  - Constipation [Recovering/Resolving]
  - Impaired driving ability [Unknown]
  - Weight gain poor [Recovering/Resolving]
  - Arthralgia [Recovering/Resolving]
  - Rash erythematous [Recovering/Resolving]
  - Fatigue [Recovering/Resolving]
  - Photosensitivity reaction [Recovering/Resolving]
  - Head discomfort [Recovering/Resolving]
  - Aggression [Recovering/Resolving]
  - Skin odour abnormal [Recovering/Resolving]
  - Dyschezia [Recovering/Resolving]
  - Nasal congestion [Recovering/Resolving]
  - Dyspnoea [Recovering/Resolving]
  - Feeling abnormal [Recovering/Resolving]
  - Myalgia [Recovering/Resolving]
  - Pruritus [Recovering/Resolving]
  - Dizziness [Recovering/Resolving]
  - Abdominal pain [Recovering/Resolving]
  - Blood glucose abnormal [Recovering/Resolving]
  - Skin irritation [Recovering/Resolving]
  - Abdominal discomfort [Recovering/Resolving]
  - Mood altered [Recovering/Resolving]
  - Flatulence [Recovering/Resolving]
  - Nervousness [Recovering/Resolving]
  - Oedema [Recovering/Resolving]
  - Pain in extremity [Recovering/Resolving]
  - Malaise [Recovering/Resolving]
  - Pain [Recovering/Resolving]
  - Vertigo [Recovered/Resolved]
  - Erythema [Recovering/Resolving]
  - Apathy [Recovering/Resolving]
  - Cardiac flutter [Recovered/Resolved]
  - Cough [Recovering/Resolving]
  - Rash pruritic [Recovering/Resolving]
  - Headache [Recovering/Resolving]
  - Irritability [Recovering/Resolving]

NARRATIVE: CASE EVENT DATE: 20210701
